FAERS Safety Report 12178932 (Version 1)
Quarter: 2016Q1

REPORT INFORMATION
  Report Type: Spontaneous
  Country: US (occurrence: None)
  Receive Date: 20160314
  Receipt Date: 20160314
  Transmission Date: 20160526
  Serious: Yes (Life-Threatening, Disabling, Other)
  Sender: FDA-Public Use
  Company Number: None

PATIENT
  Age: 59 Year
  Sex: Male
  Weight: 94.35 kg

DRUGS (21)
  1. FLOMAX [Concomitant]
     Active Substance: TAMSULOSIN HYDROCHLORIDE
  2. PRILOSEC [Concomitant]
     Active Substance: OMEPRAZOLE MAGNESIUM
  3. VENTOLIN [Concomitant]
     Active Substance: ALBUTEROL SULFATE
  4. LEVEMIR [Concomitant]
     Active Substance: INSULIN DETEMIR
  5. CREON [Concomitant]
     Active Substance: PANCRELIPASE AMYLASE\PANCRELIPASE LIPASE\PANCRELIPASE PROTEASE
  6. XANAX [Concomitant]
     Active Substance: ALPRAZOLAM
  7. METAPROLOL [Concomitant]
     Active Substance: METOPROLOL
  8. TUDORZA PRESSAIR [Concomitant]
     Active Substance: ACLIDINIUM BROMIDE
  9. JANUVIA [Suspect]
     Active Substance: SITAGLIPTIN PHOSPHATE
     Indication: DIABETES MELLITUS
     Route: 048
     Dates: start: 20121113, end: 20160130
  10. CELLCEPT [Concomitant]
     Active Substance: MYCOPHENOLATE MOFETIL\MYCOPHENOLATE MOFETIL HYDROCHLORIDE
  11. ASPIRIN. [Concomitant]
     Active Substance: ASPIRIN
  12. NORVASC [Concomitant]
     Active Substance: AMLODIPINE BESYLATE
  13. BACLOFEN. [Concomitant]
     Active Substance: BACLOFEN
  14. VIAGRA [Concomitant]
     Active Substance: SILDENAFIL CITRATE
  15. FISH OIL [Concomitant]
     Active Substance: FISH OIL
  16. PROGRAF [Concomitant]
     Active Substance: TACROLIMUS\TACROLIMUS ANHYDROUS
  17. ATORVASTATIN [Concomitant]
     Active Substance: ATORVASTATIN
  18. NICORETTE [Concomitant]
     Active Substance: NICOTINE
  19. COLCHICINE. [Concomitant]
     Active Substance: COLCHICINE
  20. HUMALOG [Concomitant]
     Active Substance: INSULIN LISPRO
  21. LISINOPRIL. [Concomitant]
     Active Substance: LISINOPRIL

REACTIONS (6)
  - Pancreatitis chronic [None]
  - Nausea [None]
  - Diarrhoea [None]
  - Abdominal pain [None]
  - Heart transplant [None]
  - Arthralgia [None]

NARRATIVE: CASE EVENT DATE: 20160119
